FAERS Safety Report 7733481-6 (Version None)
Quarter: 2011Q3

REPORT INFORMATION
  Report Type: 
  Country: None (occurrence: None)
  Receive Date: 20110907
  Receipt Date: 20110830
  Transmission Date: 20111222
  Serious: Yes (Death)
  Sender: FDA-Public Use
  Company Number: US-JNJFOC-20110106742

PATIENT
  Sex: Female
  Weight: 72.58 kg

DRUGS (5)
  1. LIDOCAINE [Concomitant]
  2. CHLORPHENIRAMINE MALEATE [Concomitant]
  3. FLUOXETINE [Concomitant]
  4. SANDOZ FENTANYL TRANSDERMAL SYSTEM [Suspect]
     Indication: BACK PAIN
     Route: 062
     Dates: start: 20070501, end: 20071201
  5. TRAZODONE HCL [Concomitant]

REACTIONS (1)
  - TOXICITY TO VARIOUS AGENTS [None]
